FAERS Safety Report 16278017 (Version 4)
Quarter: 2019Q3

REPORT INFORMATION
  Report Type: Report from Study
  Country: US (occurrence: US)
  Receive Date: 20190506
  Receipt Date: 20190925
  Transmission Date: 20191004
  Serious: Yes (Hospitalization, Other)
  Sender: FDA-Public Use
  Company Number: US-PFIZER INC-2018483396

PATIENT
  Age: 71 Year
  Sex: Female

DRUGS (5)
  1. IBRANCE [Suspect]
     Active Substance: PALBOCICLIB
     Dosage: 100 MG, CYCLIC (21 DAYS ON, 7 DAYS OFF)
     Route: 048
     Dates: start: 20190216, end: 20190407
  2. IBRANCE [Suspect]
     Active Substance: PALBOCICLIB
     Indication: BREAST CANCER
     Dosage: 125 MG, CYCLIC (DAILY FOR 21 DAYS ON, 7 DAYS OFF)
     Route: 048
     Dates: start: 20181029
  3. IBRANCE [Suspect]
     Active Substance: PALBOCICLIB
     Dosage: 100 MG, CYCLIC (100MG DAILY FOR 21 DAYS ON, 7 DAYS OFF)
     Route: 048
     Dates: start: 20190829
  4. IBRANCE [Suspect]
     Active Substance: PALBOCICLIB
     Dosage: UNK
     Dates: start: 2019, end: 20190427
  5. FASLODEX [Concomitant]
     Active Substance: FULVESTRANT
     Dosage: UNK
     Route: 030

REACTIONS (12)
  - Renal impairment [Recovered/Resolved]
  - Leukopenia [Recovered/Resolved]
  - Musculoskeletal pain [Recovering/Resolving]
  - Rash [Unknown]
  - Rash pruritic [Unknown]
  - Cough [Unknown]
  - Oedema [Recovered/Resolved]
  - Fatigue [Recovering/Resolving]
  - Cellulitis [Recovered/Resolved]
  - Diarrhoea [Unknown]
  - Stomatitis [Unknown]
  - Erythema [Unknown]

NARRATIVE: CASE EVENT DATE: 2018
